FAERS Safety Report 20762586 (Version 2)
Quarter: 2022Q2

REPORT INFORMATION
  Report Type: Spontaneous
  Country: JP (occurrence: JP)
  Receive Date: 20220428
  Receipt Date: 20220531
  Transmission Date: 20220720
  Serious: Yes (Hospitalization, Other)
  Sender: FDA-Public Use
  Company Number: JP-AMGEN-JPNSP2022072577

PATIENT
  Age: 80 Year
  Sex: Female

DRUGS (1)
  1. EVENITY [Suspect]
     Active Substance: ROMOSOZUMAB-AQQG
     Indication: Product used for unknown indication
     Dosage: 210 MILLIGRAM
     Route: 058
     Dates: start: 202111

REACTIONS (4)
  - Pulmonary tuberculosis [Unknown]
  - Pneumonia aspiration [Unknown]
  - Asthma [Unknown]
  - Sarcopenia [Unknown]
